FAERS Safety Report 11294667 (Version 1)
Quarter: 2015Q3

REPORT INFORMATION
  Report Type: Spontaneous
  Country: IL (occurrence: None)
  Receive Date: 20150722
  Receipt Date: 20150722
  Transmission Date: 20151125
  Serious: Yes (Hospitalization)
  Sender: FDA-Public Use
  Company Number: None

PATIENT
  Sex: Female
  Weight: 64 kg

DRUGS (5)
  1. ALBENDRONATE [Concomitant]
  2. VIEKIRAX (OMBITASVIR, PARITAPREVIR, RITONAVIR) 12.5MG OMBITASVIR 75MG PARITAPREVIR 50MG RITON ABBVIE LTD, UK [Suspect]
     Active Substance: OMBITASVIR\PARITAPREVIR\RITONAVIR
     Indication: CHRONIC HEPATITIS C
     Dosage: 2 PILLS DAILY 2 QD
     Dates: start: 20150501
  3. EXVIERA [Suspect]
     Active Substance: DASABUVIR
     Indication: CHRONIC HEPATITIS C
     Dosage: 2 PILLS 1 BID
     Dates: start: 20150501
  4. ENALADEM [Concomitant]
  5. URSOLET [Concomitant]

REACTIONS (2)
  - Cholelithiasis [None]
  - Urinary tract infection [None]

NARRATIVE: CASE EVENT DATE: 20150625
